FAERS Safety Report 8556710 (Version 2)
Quarter: 2013Q1

REPORT INFORMATION
  Report Type: Report from Study
  Country: RO (occurrence: RO)
  Receive Date: 20120510
  Receipt Date: 20130314
  Transmission Date: 20140127
  Serious: Yes (Hospitalization)
  Sender: FDA-Public Use
  Company Number: RO-ROCHE-1066375

PATIENT
  Age: 52 Year
  Sex: Female
  Weight: 60 kg

DRUGS (9)
  1. PEG-INTERFERON ALFA 2A [Suspect]
     Indication: CHRONIC HEPATITIS C
     Route: 058
     Dates: start: 20110811, end: 20111106
  2. RIBAVIRIN [Suspect]
     Indication: CHRONIC HEPATITIS C
     Dosage: 5 EP/DAY
     Route: 048
     Dates: start: 20110811, end: 20111106
  3. RIBAVIRIN [Suspect]
     Dosage: 3 EP/DAY
     Route: 048
     Dates: start: 20111107, end: 20111111
  4. APROVEL [Concomitant]
     Route: 065
     Dates: start: 20110908, end: 20111111
  5. OMEPRAZOLE [Concomitant]
     Route: 065
     Dates: start: 20111003, end: 20111110
  6. FENOFIBRATE [Concomitant]
     Route: 065
     Dates: start: 20111109, end: 20111110
  7. EUTHYROX [Concomitant]
     Route: 065
     Dates: start: 20111109, end: 20111110
  8. LIPANTHYL [Concomitant]
     Route: 065
     Dates: start: 20111109, end: 20111110
  9. ALISPORIVIR [Suspect]
     Indication: CHRONIC HEPATITIS C
     Route: 048
     Dates: start: 20110811, end: 20111111

REACTIONS (2)
  - Hyperlipasaemia [Recovered/Resolved]
  - Hyperamylasaemia [Not Recovered/Not Resolved]
